FAERS Safety Report 6445512-4 (Version None)
Quarter: 2009Q4

REPORT INFORMATION
  Report Type: 
  Country: None (occurrence: None)
  Receive Date: 20091110
  Receipt Date: 20090819
  Transmission Date: 20100525
  Serious: No
  Sender: FDA-Public Use
  Company Number: 1000008338

PATIENT
  Age: 56 Year
  Sex: Female

DRUGS (5)
  1. SAVELLA (MILNACIPRAN HYDROCHLORIDE) [Suspect]
     Indication: FIBROMYALGIA
     Dosage: 12.5 MG (12.5 MG, 1 IN 1 D), ORAL
     Route: 048
     Dates: start: 20090805, end: 20090807
  2. LYRICA [Concomitant]
  3. NEXIUM [Concomitant]
  4. NABUMETONE [Concomitant]
  5. METANX [Concomitant]

REACTIONS (1)
  - RASH GENERALISED [None]
